FAERS Safety Report 14317754 (Version 1)
Quarter: 2017Q4

REPORT INFORMATION
  Report Type: Spontaneous
  Country: US (occurrence: US)
  Receive Date: 20171221
  Receipt Date: 20171221
  Transmission Date: 20180321
  Serious: Yes (Life-Threatening, Disabling)
  Sender: FDA-Public Use
  Company Number: None

PATIENT
  Age: 70 Year
  Sex: Female
  Weight: 65.7 kg

DRUGS (5)
  1. HYDRALAZINE [Concomitant]
     Active Substance: HYDRALAZINE HYDROCHLORIDE
  2. BIDIL [Suspect]
     Active Substance: HYDRALAZINE HYDROCHLORIDE\ISOSORBIDE DINITRATE
     Indication: HYPERTENSION
     Dosage: ?          QUANTITY:.5 TABLET(S);?
     Route: 048
     Dates: start: 20160309, end: 20171010
  3. NETTLE LEAF TEA [Concomitant]
  4. LABETALOL [Concomitant]
     Active Substance: LABETALOL\LABETALOL HYDROCHLORIDE
  5. MULTIVITAMIN [Concomitant]
     Active Substance: VITAMINS

REACTIONS (11)
  - Chest discomfort [None]
  - Palpitations [None]
  - Increased tendency to bruise [None]
  - Dyspnoea [None]
  - Gait inability [None]
  - Oedema peripheral [None]
  - Haemoglobin decreased [None]
  - Swelling [None]
  - Malaise [None]
  - Skin turgor decreased [None]
  - Speech disorder [None]

NARRATIVE: CASE EVENT DATE: 20171010
